FAERS Safety Report 5848402-0 (Version None)
Quarter: 2008Q3

REPORT INFORMATION
  Report Type: 
  Country: None (occurrence: None)
  Receive Date: 20080814
  Receipt Date: 20080806
  Transmission Date: 20090109
  Serious: Yes (Hospitalization, Other)
  Sender: FDA-Public Use
  Company Number: 2008JP003392

PATIENT
  Age: 55 Year
  Sex: Male

DRUGS (2)
  1. PROGRAF [Suspect]
     Indication: RENAL TRANSPLANT
     Dosage: 6 MG, /D, 3 MG /D,
  2. MYCOPHENOLATE MOFETIL [Concomitant]

REACTIONS (6)
  - BLISTER [None]
  - DIPLOPIA [None]
  - HERPES ZOSTER [None]
  - NEURITIS CRANIAL [None]
  - PAIN [None]
  - SCAB [None]
